FAERS Safety Report 5259821-8 (Version None)
Quarter: 2007Q1

REPORT INFORMATION
  Report Type: 
  Country: None (occurrence: None)
  Receive Date: 20070309
  Receipt Date: 20070226
  Transmission Date: 20070707
  Serious: Yes (Other)
  Sender: FDA-Public Use
  Company Number: JP-BRISTOL-MYERS SQUIBB COMPANY-13703012

PATIENT
  Age: 2 Year
  Sex: Female

DRUGS (6)
  1. ENDOXAN [Suspect]
     Indication: ACUTE LYMPHOCYTIC LEUKAEMIA
     Route: 041
     Dates: start: 20010321, end: 20010321
  2. METHOTREXATE [Suspect]
     Indication: ACUTE LYMPHOCYTIC LEUKAEMIA
     Route: 037
     Dates: start: 20010301, end: 20010405
  3. CYLOCIDE [Suspect]
     Indication: ACUTE LYMPHOCYTIC LEUKAEMIA
     Route: 041
     Dates: start: 20010201, end: 20010408
  4. LEUKERIN [Suspect]
     Dates: start: 20010321, end: 20010408
  5. LEUNASE [Concomitant]
     Dates: start: 20010217, end: 20010217
  6. SAXIZON [Concomitant]
     Dates: start: 20010321, end: 20010405

REACTIONS (1)
  - LEUKOENCEPHALOPATHY [None]
